FAERS Safety Report 4854736-9 (Version None)
Quarter: 2005Q4

REPORT INFORMATION
  Report Type: 
  Country: None (occurrence: None)
  Receive Date: 20051215
  Receipt Date: 20051213
  Transmission Date: 20060501
  Serious: Yes (Other)
  Sender: FDA-Public Use
  Company Number: US-GLAXOSMITHKLINE-A0585701A

PATIENT
  Age: 29 Year
  Sex: Male

DRUGS (2)
  1. WELLBUTRIN [Suspect]
     Indication: DEPRESSION
     Dosage: 300MG PER DAY
     Route: 048
     Dates: start: 20050201, end: 20051118
  2. ZOLOFT [Concomitant]
     Indication: DEPRESSION
     Dosage: 200MG PER DAY

REACTIONS (9)
  - CONFUSIONAL STATE [None]
  - DYSPHAGIA [None]
  - FALL [None]
  - HEAD INJURY [None]
  - HEADACHE [None]
  - INFLUENZA LIKE ILLNESS [None]
  - LOSS OF CONSCIOUSNESS [None]
  - MYALGIA [None]
  - PETIT MAL EPILEPSY [None]
